FAERS Safety Report 10463410 (Version 1)
Quarter: 2014Q3

REPORT INFORMATION
  Report Type: Spontaneous
  Country: US (occurrence: None)
  Receive Date: 20140918
  Receipt Date: 20140918
  Transmission Date: 20150326
  Serious: Yes (Other)
  Sender: FDA-Public Use
  Company Number: None

PATIENT
  Age: 43 Year
  Sex: Male
  Weight: 132.45 kg

DRUGS (2)
  1. DULOXETINE [Suspect]
     Active Substance: DULOXETINE
     Indication: FIBROMYALGIA
     Route: 048
     Dates: start: 20140913, end: 20140917
  2. DULOXETINE [Suspect]
     Active Substance: DULOXETINE
     Indication: PAIN
     Route: 048
     Dates: start: 20140913, end: 20140917

REACTIONS (11)
  - Headache [None]
  - Abdominal discomfort [None]
  - Fatigue [None]
  - Constipation [None]
  - Paraesthesia [None]
  - Pain [None]
  - Feeling abnormal [None]
  - Nausea [None]
  - Drug withdrawal syndrome [None]
  - Product substitution issue [None]
  - Dizziness [None]

NARRATIVE: CASE EVENT DATE: 20140917
